FAERS Safety Report 11329124 (Version 7)
Quarter: 2016Q1

REPORT INFORMATION
  Report Type: Report from Study
  Country: BR (occurrence: BR)
  Receive Date: 20150803
  Receipt Date: 20160302
  Transmission Date: 20160525
  Serious: Yes (Other)
  Sender: FDA-Public Use
  Company Number: PHHY2015BR089610

PATIENT
  Age: 74 Year
  Sex: Female
  Weight: 50 kg

DRUGS (6)
  1. ACLASTA [Suspect]
     Active Substance: ZOLEDRONIC ACID
     Dosage: 5 MG, Q12MO
     Route: 042
     Dates: start: 20150831
  2. ACLASTA [Suspect]
     Active Substance: ZOLEDRONIC ACID
     Indication: OSTEOPOROSIS
     Dosage: 5 MG, Q12MO
     Route: 042
     Dates: start: 20140416
  3. CALTRATE [Concomitant]
     Active Substance: CALCIUM CARBONATE
     Indication: OSTEOPOROSIS
     Dosage: 1 DF (600 MG), QD (STARTED MORE THAN 10 YEARS AGO)
     Route: 048
  4. ADDERA D3 [Concomitant]
     Active Substance: CHOLECALCIFEROL
     Indication: HYPOVITAMINOSIS
     Dosage: 1 DF (1000 MG), QD (STARTED 2 YEARS AGO AND ENDED 20 DAYS AGO)
     Route: 048
  5. CALCIUM [Concomitant]
     Active Substance: CALCIUM
     Indication: OSTEOPOROSIS
     Dosage: 2 DF, QD (STARTED MORE THAN 10 YEARS AGO)
     Route: 048
  6. VITAMIN D3 [Concomitant]
     Active Substance: CHOLECALCIFEROL
     Indication: OSTEOPOROSIS
     Dosage: 2 DF (1000 U), QD (STARTED MORE THAN 10 YEARS AGO)
     Route: 048

REACTIONS (12)
  - Fall [Recovering/Resolving]
  - Rib fracture [Recovering/Resolving]
  - Pain [Not Recovered/Not Resolved]
  - Dizziness [Recovered/Resolved]
  - Nausea [Recovered/Resolved]
  - Spinal pain [Unknown]
  - Musculoskeletal chest pain [Unknown]
  - Body height decreased [Unknown]
  - Weight decreased [Recovering/Resolving]
  - Arthralgia [Not Recovered/Not Resolved]
  - Bone pain [Recovering/Resolving]
  - Spinal fracture [Unknown]

NARRATIVE: CASE EVENT DATE: 201505
